FAERS Safety Report 9373854 (Version 2)
Quarter: 2014Q1

REPORT INFORMATION
  Report Type: Report from Study
  Country: GB (occurrence: GB)
  Receive Date: 20130628
  Receipt Date: 20140321
  Transmission Date: 20141002
  Serious: Yes (Hospitalization, Other)
  Sender: FDA-Public Use
  Company Number: GB-ROCHE-1242076

PATIENT
  Age: 73 Year
  Sex: Female

DRUGS (8)
  1. RANIBIZUMAB [Suspect]
     Indication: PRODUCT USED FOR UNKNOWN INDICATION
     Dosage: DATE LAST INJECTION OF RANIBIZUMAB BEFORE SAE 07 MAR 2013
     Route: 050
     Dates: start: 20110121
  2. RANIBIZUMAB [Suspect]
     Route: 065
     Dates: start: 20130905
  3. SUMATRIPTAN SUCCINATE [Concomitant]
  4. OMEPRAZOLE [Concomitant]
  5. PERINDOPRIL [Concomitant]
  6. BISOPROLOL [Concomitant]
  7. AMLODIPINE [Concomitant]
  8. FUROSEMIDE [Concomitant]

REACTIONS (2)
  - Viral infection [Recovered/Resolved]
  - Ventricular tachycardia [Unknown]
